FAERS Safety Report 23666159 (Version 1)
Quarter: 2024Q1

REPORT INFORMATION
  Report Type: Spontaneous
  Country: PT (occurrence: PT)
  Receive Date: 20240324
  Receipt Date: 20240324
  Transmission Date: 20240410
  Serious: Yes (Other)
  Sender: FDA-Public Use
  Company Number: PT-SANDOZ-SDZ2024PT021379

PATIENT
  Age: 59 Year
  Sex: Male

DRUGS (4)
  1. FOLIC ACID [Suspect]
     Active Substance: FOLIC ACID
     Indication: Peritoneal mesothelioma malignant
     Dosage: UNK
     Route: 065
  2. PEMETREXED [Suspect]
     Active Substance: PEMETREXED
     Indication: Peritoneal mesothelioma malignant
     Dosage: 500 MG/M2, 21/21 DAYS, D SIX CYCLES
     Route: 065
  3. CISPLATIN [Suspect]
     Active Substance: CISPLATIN
     Indication: Peritoneal mesothelioma malignant
     Dosage: 75 MILLIGRAM/SQ. METER (21/21 DAYS, 6 CYCLES  )
     Route: 065
  4. HYDROXOCOBALAMIN [Suspect]
     Active Substance: HYDROXOCOBALAMIN
     Indication: Peritoneal mesothelioma malignant
     Dosage: UNK
     Route: 065

REACTIONS (4)
  - Malignant neoplasm progression [Unknown]
  - Peritoneal mesothelioma malignant [Unknown]
  - Diarrhoea [Unknown]
  - Nausea [Unknown]
